FAERS Safety Report 15660697 (Version 3)
Quarter: 2019Q1

REPORT INFORMATION
  Report Type: Spontaneous
  Country: US (occurrence: US)
  Receive Date: 20181127
  Receipt Date: 20190125
  Transmission Date: 20190417
  Serious: Yes (Hospitalization, Other)
  Sender: FDA-Public Use
  Company Number: US-PFIZER INC-2018480549

PATIENT
  Age: 20 Year
  Sex: Male
  Weight: 88 kg

DRUGS (4)
  1. CORTEF [Suspect]
     Active Substance: HYDROCORTISONE
     Indication: ADRENAL INSUFFICIENCY
     Dosage: 10 MG, 3X/DAY
     Route: 048
  2. CORTEF [Suspect]
     Active Substance: HYDROCORTISONE
     Indication: HYPOPITUITARISM
     Dosage: 5 MG, UNK
  3. CORTEF [Suspect]
     Active Substance: HYDROCORTISONE
     Dosage: UNK
  4. LEVOTHYROXINE. [Concomitant]
     Active Substance: LEVOTHYROXINE
     Indication: HYPOPITUITARISM
     Dosage: 125 UG, 1X/DAY
     Route: 048

REACTIONS (6)
  - Adrenocortical insufficiency acute [Unknown]
  - Cortisol decreased [Unknown]
  - Poor quality product administered [Unknown]
  - Hypersensitivity [Unknown]
  - Product contamination physical [Unknown]
  - Product physical issue [Unknown]

NARRATIVE: CASE EVENT DATE: 201808
